FAERS Safety Report 17249190 (Version 1)
Quarter: 2020Q1

REPORT INFORMATION
  Report Type: Spontaneous
  Country: FR (occurrence: FR)
  Receive Date: 20200108
  Receipt Date: 20200108
  Transmission Date: 20200409
  Serious: Yes (Other)
  Sender: FDA-Public Use
  Company Number: FR-009507513-1912FRA012409

PATIENT
  Age: 55 Year
  Sex: Female

DRUGS (4)
  1. KEYTRUDA [Suspect]
     Active Substance: PEMBROLIZUMAB
     Indication: MALIGNANT MELANOMA
     Dosage: 210 MILLIGRAM, CYCLICAL
     Route: 041
     Dates: start: 20170830, end: 20180601
  2. OESTRODOSE [Concomitant]
     Active Substance: ESTRADIOL
     Route: 003
  3. UTROGESTAN [Concomitant]
     Active Substance: PROGESTERONE
     Dosage: 1 DOSAGE FORM, QD
  4. DEPAKOTE [Concomitant]
     Active Substance: DIVALPROEX SODIUM
     Indication: AFFECTIVE DISORDER
     Route: 048

REACTIONS (2)
  - Tenosynovitis [Recovering/Resolving]
  - Polyarthritis [Recovering/Resolving]

NARRATIVE: CASE EVENT DATE: 20180617
